FAERS Safety Report 21803825 (Version 5)
Quarter: 2024Q1

REPORT INFORMATION
  Report Type: Report from Study
  Country: US (occurrence: US)
  Receive Date: 20230102
  Receipt Date: 20240307
  Transmission Date: 20240410
  Serious: Yes (Hospitalization, Other)
  Sender: FDA-Public Use
  Company Number: US-ACADIA PHARMACEUTICALS INC.-ACA-2022-PIM-004289

PATIENT
  Age: 66 Year
  Sex: Male

DRUGS (15)
  1. NUPLAZID [Suspect]
     Active Substance: PIMAVANSERIN TARTRATE
     Indication: Parkinson^s disease psychosis
     Dosage: 34 MILLIGRAM, QD
     Route: 048
     Dates: start: 20221107, end: 20221124
  2. NUPLAZID [Suspect]
     Active Substance: PIMAVANSERIN TARTRATE
     Dosage: 34 MILLIGRAM, QD
     Route: 048
     Dates: start: 202211
  3. CILOSTAZOL [Concomitant]
     Active Substance: CILOSTAZOL
  4. METFORMIN [Concomitant]
     Active Substance: METFORMIN HYDROCHLORIDE
  5. VITAMIN C [Concomitant]
     Active Substance: ASCORBIC ACID
  6. IRON [Concomitant]
     Active Substance: IRON
  7. LIPITOR [Concomitant]
     Active Substance: ATORVASTATIN CALCIUM
  8. ASPIRIN [Concomitant]
     Active Substance: ASPIRIN
  9. CELECOXIB [Concomitant]
     Active Substance: CELECOXIB
  10. OMEPRAZOLE [Concomitant]
     Active Substance: OMEPRAZOLE
  11. B12 [MECOBALAMIN] [Concomitant]
  12. GABAPENTIN [Concomitant]
     Active Substance: GABAPENTIN
  13. LANSOPRAZOLE [Concomitant]
     Active Substance: LANSOPRAZOLE
  14. JANUMET [Concomitant]
     Active Substance: METFORMIN HYDROCHLORIDE\SITAGLIPTIN PHOSPHATE
  15. PREVACID [Concomitant]
     Active Substance: LANSOPRAZOLE

REACTIONS (13)
  - Seizure [Not Recovered/Not Resolved]
  - Cerebrovascular accident [Unknown]
  - Cerebrovascular accident [Unknown]
  - Cerebrovascular accident [Unknown]
  - Blindness [Unknown]
  - Neuropathy peripheral [Unknown]
  - Condition aggravated [Recovered/Resolved]
  - Anger [Unknown]
  - Parkinson^s disease [Unknown]
  - Product dose omission issue [Unknown]
  - Hallucination, visual [Not Recovered/Not Resolved]
  - Aggression [Unknown]
  - Hallucination, visual [Unknown]

NARRATIVE: CASE EVENT DATE: 20221107
